FAERS Safety Report 6738161-1 (Version None)
Quarter: 2010Q2

REPORT INFORMATION
  Report Type: 
  Country: None (occurrence: None)
  Receive Date: 20100520
  Receipt Date: 20100519
  Transmission Date: 20101027
  Serious: Yes (Other)
  Sender: FDA-Public Use
  Company Number: 584900

PATIENT

DRUGS (6)
  1. CARBOPLATIN [Suspect]
     Indication: MEDULLOBLASTOMA
     Dosage: 500 MG/M2
  2. ETOPOSIDE [Suspect]
     Indication: MEDULLOBLASTOMA
     Dosage: 250 MG/M2
  3. GRANULOCYTE-COLONY STIMULATING FACTOR (G-CSF) [Concomitant]
  4. ACYCLOVIR [Concomitant]
  5. FLUCONAZOLE [Concomitant]
  6. PENTAMIDINE ISETHIONATE [Concomitant]

REACTIONS (10)
  - CONVULSION [None]
  - CYSTITIS HAEMORRHAGIC [None]
  - HAEMATOTOXICITY [None]
  - MALIGNANT NEOPLASM PROGRESSION [None]
  - MEDULLOBLASTOMA [None]
  - MUCOSAL INFLAMMATION [None]
  - NEUTROPENIA [None]
  - PERICARDIAL EFFUSION [None]
  - PLEURAL EFFUSION [None]
  - SEPSIS [None]
